FAERS Safety Report 6606512-4 (Version None)
Quarter: 2010Q1

REPORT INFORMATION
  Report Type: 
  Country: None (occurrence: None)
  Receive Date: 20100226
  Receipt Date: 20100222
  Transmission Date: 20100710
  Serious: Yes (Other)
  Sender: FDA-Public Use
  Company Number: PHHY2009BR41487

PATIENT
  Age: 82 Year
  Sex: Male

DRUGS (2)
  1. ZADITEN [Suspect]
     Indication: DERMATITIS
     Dosage: 1 MG, BID
     Route: 048
     Dates: start: 20090822
  2. ALLEGRA [Concomitant]
     Dosage: 1 TABLET DAILY
     Dates: start: 20050101

REACTIONS (4)
  - ABDOMINAL DISTENSION [None]
  - BLISTER [None]
  - OBSTRUCTION [None]
  - OEDEMA PERIPHERAL [None]
